FAERS Safety Report 9031964 (Version 1)
Quarter: 2013Q1

REPORT INFORMATION
  Report Type: Spontaneous
  Country: US (occurrence: US)
  Receive Date: 20130125
  Receipt Date: 20130125
  Transmission Date: 20140127
  Serious: No
  Sender: FDA-Public Use
  Company Number: US-009507513-1301USA010635

PATIENT
  Sex: Female

DRUGS (2)
  1. IMPLANON [Suspect]
     Dosage: UNK
     Dates: start: 2011
  2. IMPLANON [Suspect]
     Dosage: UNK
     Dates: start: 2008, end: 2011

REACTIONS (1)
  - Menorrhagia [Not Recovered/Not Resolved]
